FAERS Safety Report 18823108 (Version 1)
Quarter: 2021Q1

REPORT INFORMATION
  Report Type: Spontaneous
  Country: US (occurrence: US)
  Receive Date: 20210202
  Receipt Date: 20210202
  Transmission Date: 20210419
  Serious: Yes (Death, Hospitalization, Other)
  Sender: FDA-Public Use
  Company Number: US-AMGEN-USASP2021012829

PATIENT

DRUGS (1)
  1. FILGRASTIM [Suspect]
     Active Substance: FILGRASTIM
     Indication: ACUTE MYELOID LEUKAEMIA
     Dosage: UNK
     Route: 065

REACTIONS (8)
  - Febrile neutropenia [Unknown]
  - Alpha haemolytic streptococcal infection [Unknown]
  - Septic shock [Unknown]
  - Infection [Fatal]
  - Unevaluable event [Fatal]
  - Enterococcal infection [Unknown]
  - Treatment failure [Unknown]
  - Staphylococcal infection [Unknown]
